FAERS Safety Report 4961631-3 (Version None)
Quarter: 2006Q1

REPORT INFORMATION
  Report Type: 
  Country: None (occurrence: None)
  Receive Date: 20060329
  Receipt Date: 20060322
  Transmission Date: 20060701
  Serious: Yes (Other)
  Sender: FDA-Public Use
  Company Number: 217648

PATIENT
  Age: 64 Year
  Sex: Female

DRUGS (3)
  1. MABTHERA (RITUXIMAB) [Suspect]
     Indication: CHRONIC LYMPHOCYTIC LEUKAEMIA
     Dosage: INTRAVENOUS
     Route: 042
     Dates: start: 20050831, end: 20050831
  2. FLUDARABINE [Suspect]
     Indication: CHRONIC LYMPHOCYTIC LEUKAEMIA
     Dosage: 39 MG, INTRAVENOUS
     Route: 042
     Dates: start: 20050831, end: 20050902
  3. CYCLOPHOSPHAMIDE [Suspect]
     Indication: CHRONIC LYMPHOCYTIC LEUKAEMIA
     Dosage: 390 MG, INTRAVENOUS
     Route: 042
     Dates: start: 20050831, end: 20050902

REACTIONS (1)
  - NEUTROPENIA [None]
